FAERS Safety Report 4574066-2 (Version None)
Quarter: 2005Q1

REPORT INFORMATION
  Report Type: 
  Country: None (occurrence: None)
  Receive Date: 20050204
  Receipt Date: 20050128
  Transmission Date: 20050727
  Serious: Yes (Hospitalization)
  Sender: FDA-Public Use
  Company Number: 2005UW01511

PATIENT
  Age: 58 Year
  Sex: Female
  Weight: 61.234 kg

DRUGS (2)
  1. CRESTOR [Suspect]
     Indication: HYPERCHOLESTEROLAEMIA
     Dosage: 20 MG PO
     Route: 048
     Dates: start: 20031101, end: 20040501
  2. SYNTHROID [Concomitant]

REACTIONS (6)
  - ARTHRALGIA [None]
  - ASTHENIA [None]
  - FATIGUE [None]
  - MYOCARDIAL INFARCTION [None]
  - NAUSEA [None]
  - PNEUMONIA [None]
